FAERS Safety Report 4926728-2 (Version None)
Quarter: 2006Q1

REPORT INFORMATION
  Report Type: 
  Country: None (occurrence: None)
  Receive Date: 20060228
  Receipt Date: 20050602
  Transmission Date: 20060701
  Serious: Yes (Other)
  Sender: FDA-Public Use
  Company Number: US-GLAXOSMITHKLINE-A0561181A

PATIENT
  Age: 21 Year
  Sex: Female
  Weight: 65.9 kg

DRUGS (5)
  1. LAMICTAL [Suspect]
     Indication: BIPOLAR II DISORDER
     Route: 048
     Dates: start: 20050307, end: 20050531
  2. VALPROIC ACID [Concomitant]
     Dosage: 500MG PER DAY
  3. ALLEGRA [Concomitant]
  4. AMBIEN [Concomitant]
  5. DEPAKOTE [Concomitant]
     Dosage: 500MG TWICE PER DAY
     Route: 048
     Dates: start: 20050307

REACTIONS (3)
  - ANORECTAL DISORDER [None]
  - ORAL SOFT TISSUE DISORDER [None]
  - STEVENS-JOHNSON SYNDROME [None]
